FAERS Safety Report 9845366 (Version 1)
Quarter: 2014Q1

REPORT INFORMATION
  Report Type: Spontaneous
  Country: US (occurrence: None)
  Receive Date: 20140123
  Receipt Date: 20140123
  Transmission Date: 20141002
  Serious: Yes (Other)
  Sender: FDA-Public Use
  Company Number: None

PATIENT
  Age: 64 Year
  Sex: Female

DRUGS (1)
  1. JANTOVEN [Suspect]
     Indication: ATRIAL FIBRILLATION
     Dosage: 4 MG DAILY ONCE DAILY TAKEN BY MOUTH
     Route: 048
     Dates: start: 20131113, end: 20140118

REACTIONS (4)
  - International normalised ratio increased [None]
  - Product substitution issue [None]
  - Blood pressure increased [None]
  - Drug ineffective [None]
